FAERS Safety Report 24709059 (Version 1)
Quarter: 2024Q4

REPORT INFORMATION
  Report Type: Spontaneous
  Country: US (occurrence: US)
  Receive Date: 20241208
  Receipt Date: 20241208
  Transmission Date: 20250115
  Serious: No
  Sender: SANOFI AVENTIS
  Company Number: US-SA-2024SA361475

PATIENT
  Age: 60 Year
  Sex: Female

DRUGS (1)
  1. DUPIXENT [Suspect]
     Active Substance: DUPILUMAB
     Indication: Nasal polyps
     Dosage: 300 MG QOW
     Route: 058
     Dates: start: 20241118, end: 20241202

REACTIONS (4)
  - Sinusitis [Unknown]
  - Tooth fracture [Unknown]
  - Dental discomfort [Unknown]
  - Nasal congestion [Unknown]

NARRATIVE: CASE EVENT DATE: 20241101
